FAERS Safety Report 6055430-1 (Version None)
Quarter: 2009Q1

REPORT INFORMATION
  Report Type: 
  Country: None (occurrence: None)
  Receive Date: 20090128
  Receipt Date: 20090120
  Transmission Date: 20090719
  Serious: Yes (Hospitalization, Other)
  Sender: FDA-Public Use
  Company Number: FR-JNJFOC-20081003364

PATIENT
  Sex: Female
  Weight: 86 kg

DRUGS (8)
  1. RISPERDAL [Suspect]
     Indication: PSYCHOTIC DISORDER
     Route: 048
  2. PLAVIX [Concomitant]
     Indication: ARRHYTHMIA
     Route: 048
  3. PLAVIX [Concomitant]
     Indication: CONGESTIVE CARDIOMYOPATHY
     Route: 048
  4. CARDENSIEL [Concomitant]
     Indication: HYPERTENSION
     Route: 048
  5. COVERSYL [Concomitant]
     Indication: HYPERTENSION
     Route: 048
  6. RILMENIDINE [Concomitant]
     Indication: HYPERTENSION
     Route: 048
  7. KARDEGIC [Concomitant]
     Indication: ARRHYTHMIA
     Route: 048
  8. KARDEGIC [Concomitant]
     Indication: CONGESTIVE CARDIOMYOPATHY
     Route: 048

REACTIONS (2)
  - CARDIAC DISORDER [None]
  - DIABETES MELLITUS [None]
